FAERS Safety Report 14382134 (Version 1)
Quarter: 2018Q1

REPORT INFORMATION
  Report Type: Spontaneous
  Country: US (occurrence: US)
  Receive Date: 20180112
  Receipt Date: 20180112
  Transmission Date: 20180509
  Serious: No
  Sender: FDA-Public Use
  Company Number: US-PERRIGO-17US027561

PATIENT
  Age: 73 Year
  Sex: Male
  Weight: 68.27 kg

DRUGS (5)
  1. ACETAMINOPHEN. [Suspect]
     Active Substance: ACETAMINOPHEN
     Indication: PROCTALGIA
     Dosage: 650 MG, 1 TO 2 TIMES DAILY
     Route: 054
     Dates: start: 201710, end: 20171013
  2. CAPECITABINE. [Suspect]
     Active Substance: CAPECITABINE
     Indication: RECTAL CANCER
     Dosage: 1500 MG, BID
     Route: 048
     Dates: start: 20171001
  3. DILANTIN [Concomitant]
     Active Substance: PHENYTOIN
     Indication: EPILEPSY
     Dosage: UNK
     Route: 065
     Dates: start: 200011
  4. RADIOTHERAPY [Suspect]
     Active Substance: RADIATION THERAPY
     Indication: RECTAL CANCER
     Dosage: 1 TREATMENT DAILY, 5 DAYS PER WEEK
     Route: 050
     Dates: start: 20171002
  5. FLONASE [Concomitant]
     Active Substance: FLUTICASONE PROPIONATE
     Indication: SEASONAL ALLERGY
     Dosage: UNK
     Route: 065

REACTIONS (1)
  - Haemorrhoids [Recovering/Resolving]

NARRATIVE: CASE EVENT DATE: 201710
